FAERS Safety Report 19271282 (Version 1)
Quarter: 2021Q2

REPORT INFORMATION
  Report Type: Spontaneous
  Country: BE (occurrence: BE)
  Receive Date: 20210518
  Receipt Date: 20210518
  Transmission Date: 20210717
  Serious: Yes (Death, Life-Threatening, Other)
  Sender: FDA-Public Use
  Company Number: BE-UCBSA-2021022565

PATIENT

DRUGS (1)
  1. LEVETIRACETAM. [Suspect]
     Active Substance: LEVETIRACETAM
     Indication: STATUS EPILEPTICUS
     Dosage: UNK

REACTIONS (5)
  - Death [Fatal]
  - Product use issue [Unknown]
  - Arrhythmia [Unknown]
  - Hypotension [Unknown]
  - Seizure [Unknown]
